FAERS Safety Report 7235244-7 (Version None)
Quarter: 2011Q1

REPORT INFORMATION
  Report Type: 
  Country: None (occurrence: None)
  Receive Date: 20110120
  Receipt Date: 20101227
  Transmission Date: 20110831
  Serious: Yes (Life-Threatening, Hospitalization, Other)
  Sender: FDA-Public Use
  Company Number: JP-BAYER-201013009BYL

PATIENT
  Sex: Male

DRUGS (12)
  1. ANTIFUNGALS [Concomitant]
     Indication: SEPSIS
     Dosage: 200 MG, QD
     Route: 042
     Dates: start: 20080328, end: 20080329
  2. CIPROXAN-I.V. [Suspect]
     Indication: SEPSIS
     Dosage: 300 MG, BID
     Route: 041
     Dates: start: 20080320, end: 20080328
  3. ALBUMIN (HUMAN) [Concomitant]
     Dosage: 0.5 G, QD
     Route: 042
     Dates: start: 20080327, end: 20080327
  4. ADONA [Concomitant]
     Dosage: 50 MG, BID
     Route: 041
     Dates: start: 20080320, end: 20080416
  5. UNCODEABLE ^UNCLASSIFIABLE^ [Concomitant]
     Indication: SEPSIS
     Dosage: 200 MG, QD
     Route: 042
     Dates: start: 20080328, end: 20080329
  6. OMEGACIN [Concomitant]
     Indication: SEPSIS
  7. OMEPRAL [Concomitant]
     Dosage: 20 MG, BID
     Route: 042
     Dates: start: 20080320, end: 20080327
  8. NEOAMIYU [Concomitant]
     Dosage: 200 ML, QD
     Route: 042
     Dates: start: 20080321, end: 20080331
  9. FOY [Concomitant]
     Dosage: 1500 MG, QD
     Route: 042
     Dates: start: 20080321, end: 20080401
  10. LASIX [Concomitant]
     Dosage: 10 MG, QD
     Route: 042
     Dates: start: 20080324, end: 20080401
  11. SEISHOKU [Concomitant]
     Dosage: 100 ML, BID
     Route: 041
     Dates: start: 20080320, end: 20080328
  12. TRANSAMIN [Concomitant]
     Dosage: 250 MG, QD
     Route: 041
     Dates: start: 20080320, end: 20080326

REACTIONS (3)
  - BLOOD UREA INCREASED [None]
  - ASPARTATE AMINOTRANSFERASE INCREASED [None]
  - BLOOD CREATINE PHOSPHOKINASE INCREASED [None]
